FAERS Safety Report 4357987-5 (Version None)
Quarter: 2004Q2

REPORT INFORMATION
  Report Type: 
  Country: None (occurrence: None)
  Receive Date: 20040510
  Receipt Date: 20040428
  Transmission Date: 20050107
  Serious: Yes (Hospitalization, Other)
  Sender: FDA-Public Use
  Company Number: 163-20785-04050013

PATIENT
  Age: 50 Year
  Sex: Male

DRUGS (4)
  1. THALIDOMIDE (THALIDOMIDE) (CAPSULES) [Suspect]
     Indication: MULTIPLE MYELOMA
     Dosage: ORAL
     Route: 048
     Dates: start: 20020201
  2. MELPHALAN (MELPHALAN) [Concomitant]
  3. PAMIDRONATE DISODIUM [Concomitant]
  4. EPOETIN ALFA (EPOETIN ALFA) [Concomitant]

REACTIONS (3)
  - BLOOD CALCIUM INCREASED [None]
  - BLOOD CREATININE INCREASED [None]
  - LEUKAEMIA PLASMACYTIC [None]
